FAERS Safety Report 5209440-4 (Version None)
Quarter: 2006Q4

REPORT INFORMATION
  Report Type: 
  Country: None (occurrence: None)
  Receive Date: 20061101
  Receipt Date: 20060619
  Transmission Date: 20070319
  Serious: No
  Sender: FDA-Public Use
  Company Number: 2006PV015875

PATIENT
  Age: 62 Year
  Sex: Male
  Weight: 130.6359 kg

DRUGS (1)
  1. SYMLIN [Suspect]
     Indication: DIABETES MELLITUS NON-INSULIN-DEPENDENT
     Dosage: 60 MCG; TID; SC
     Route: 058
     Dates: start: 20060605

REACTIONS (7)
  - COUGH [None]
  - DECREASED APPETITE [None]
  - DYSPNOEA [None]
  - FLATULENCE [None]
  - NAUSEA [None]
  - PHARYNGOLARYNGEAL PAIN [None]
  - WEIGHT DECREASED [None]
